FAERS Safety Report 5765655-8 (Version None)
Quarter: 2008Q2

REPORT INFORMATION
  Report Type: 
  Country: None (occurrence: None)
  Receive Date: 20080604
  Receipt Date: 20070413
  Transmission Date: 20081010
  Serious: Yes (Death)
  Sender: FDA-Public Use
  Company Number: 493511

PATIENT
  Age: 46 Year
  Sex: Female

DRUGS (1)
  1. LARIAM [Suspect]
     Indication: DRUG USE FOR UNKNOWN INDICATION
     Dates: start: 20060401

REACTIONS (3)
  - COMPLETED SUICIDE [None]
  - SUICIDAL IDEATION [None]
  - SUICIDE ATTEMPT [None]
